FAERS Safety Report 19172780 (Version 1)
Quarter: 2021Q2

REPORT INFORMATION
  Report Type: Spontaneous
  Country: US (occurrence: US)
  Receive Date: 20210423
  Receipt Date: 20210423
  Transmission Date: 20210717
  Serious: No
  Sender: FDA-Public Use
  Company Number: US-CELGENEUS-USA-20210402357

PATIENT
  Sex: Female

DRUGS (2)
  1. REVLIMID [Suspect]
     Active Substance: LENALIDOMIDE
     Indication: PLASMA CELL MYELOMA
     Dosage: 25 MILLIGRAM
     Route: 048
  2. REVLIMID [Suspect]
     Active Substance: LENALIDOMIDE
     Dosage: 10 MILLIGRAM
     Route: 048

REACTIONS (9)
  - Dizziness [Unknown]
  - Blood magnesium decreased [Unknown]
  - Gait disturbance [Unknown]
  - Illness [Unknown]
  - Dehydration [Unknown]
  - Dysgeusia [Unknown]
  - Hypersensitivity [Unknown]
  - Diarrhoea [Unknown]
  - Muscle spasms [Unknown]
